FAERS Safety Report 9837051 (Version 9)
Quarter: 2014Q2

REPORT INFORMATION
  Report Type: Spontaneous
  Country: BE (occurrence: BE)
  Receive Date: 20140123
  Receipt Date: 20140501
  Transmission Date: 20141212
  Serious: Yes (Hospitalization)
  Sender: FDA-Public Use
  Company Number: BE-009507513-1310BEL005906

PATIENT
  Age: 54 Year
  Sex: Female

DRUGS (13)
  1. PEGINTRON [Suspect]
     Indication: HEPATITIS C
     Dosage: 80 MICROGRAM,0.5 ML, QW
     Dates: start: 20131003, end: 20140108
  2. PEGINTRON [Suspect]
     Dosage: 80 MICROGRAM, 0.5 ML, QW
     Dates: start: 20140116, end: 20140305
  3. PEGINTRON [Suspect]
     Dosage: 80 MICROGRAM, 0.4 ML, QW
     Dates: start: 20140306, end: 20140413
  4. REBETOL [Suspect]
     Indication: HEPATITIS C
     Dosage: 800 MG, DAILY
     Route: 048
     Dates: start: 20131003, end: 20131220
  5. REBETOL [Suspect]
     Dosage: 600 MG, DAILY
     Route: 048
     Dates: start: 20131221, end: 20140109
  6. REBETOL [Suspect]
     Dosage: 600 MG, DAILY
     Route: 048
     Dates: start: 20140113, end: 20140305
  7. REBETOL [Suspect]
     Dosage: 400 MG, DAILY
     Route: 048
     Dates: start: 20140306, end: 20140413
  8. VICTRELIS [Suspect]
     Indication: HEPATITIS C
     Dosage: 2400 MG, DAILY
     Route: 048
     Dates: start: 20131031, end: 20140109
  9. VICTRELIS [Suspect]
     Dosage: 2400 MG, DAILY
     Route: 048
     Dates: start: 20140113, end: 20140413
  10. PAROXETINE [Concomitant]
     Dosage: DAILY DOSE 10MG
  11. PAROXETINE [Concomitant]
     Dosage: 1/2 PAROXETINE IN THE MORNING
     Route: 048
  12. ALPRAZOLAM [Concomitant]
     Indication: ANXIOLYTIC THERAPY
     Dosage: 1/4 OF A TABLET
  13. CIPROFLOXACIN [Concomitant]
     Dosage: UNK
     Dates: start: 20140110, end: 20140117

REACTIONS (65)
  - Renal pain [Unknown]
  - Cystitis noninfective [Unknown]
  - Pyrexia [Unknown]
  - Feeling hot [Not Recovered/Not Resolved]
  - Psoriasis [Not Recovered/Not Resolved]
  - Dizziness [Not Recovered/Not Resolved]
  - Chills [Not Recovered/Not Resolved]
  - Depressed mood [Not Recovered/Not Resolved]
  - Injection site rash [Not Recovered/Not Resolved]
  - Injection site erythema [Not Recovered/Not Resolved]
  - Therapeutic response changed [Not Recovered/Not Resolved]
  - Glossitis [Unknown]
  - Dysgeusia [Recovering/Resolving]
  - Salivary hypersecretion [Unknown]
  - Dizziness [Recovering/Resolving]
  - Psoriasis [Unknown]
  - Depressed mood [Unknown]
  - Injection site erythema [Unknown]
  - Palpitations [Not Recovered/Not Resolved]
  - Dysgeusia [Unknown]
  - Hypogeusia [Unknown]
  - Sleep disorder [Unknown]
  - Productive cough [Recovering/Resolving]
  - Dyspepsia [Unknown]
  - Dysgeusia [Not Recovered/Not Resolved]
  - Bladder disorder [Unknown]
  - Urinary incontinence [Unknown]
  - Arthralgia [Not Recovered/Not Resolved]
  - Anaemia [Not Recovered/Not Resolved]
  - Hypertension [Not Recovered/Not Resolved]
  - Vomiting [Unknown]
  - Productive cough [Recovering/Resolving]
  - Decreased appetite [Unknown]
  - Dysgeusia [Unknown]
  - Dry mouth [Unknown]
  - Alopecia [Not Recovered/Not Resolved]
  - Cough [Unknown]
  - Headache [Not Recovered/Not Resolved]
  - Red blood cell count decreased [Unknown]
  - White blood cell count decreased [Unknown]
  - Alopecia [Unknown]
  - Alopecia [Not Recovered/Not Resolved]
  - Palpitations [Not Recovered/Not Resolved]
  - Arthralgia [Not Recovered/Not Resolved]
  - White blood cell count decreased [Not Recovered/Not Resolved]
  - Lymphocyte percentage decreased [Unknown]
  - Red blood cell count decreased [Not Recovered/Not Resolved]
  - Haematocrit decreased [Not Recovered/Not Resolved]
  - Haemoglobin decreased [Not Recovered/Not Resolved]
  - White blood cell count decreased [Not Recovered/Not Resolved]
  - Monocyte percentage increased [Not Recovered/Not Resolved]
  - Lymphocyte count decreased [Not Recovered/Not Resolved]
  - Platelet count decreased [Not Recovered/Not Resolved]
  - Red blood cell count decreased [Unknown]
  - Haematocrit decreased [Unknown]
  - Haemoglobin decreased [Unknown]
  - Mean cell volume increased [Unknown]
  - White blood cell count decreased [Unknown]
  - Monocyte percentage increased [Unknown]
  - Lymphocyte count decreased [Unknown]
  - Platelet count decreased [Unknown]
  - Neutrophil percentage decreased [Recovered/Resolved]
  - Neutrophil count decreased [Not Recovered/Not Resolved]
  - Neutrophil count decreased [Unknown]
  - Weight decreased [Unknown]
